FAERS Safety Report 23058300 (Version 1)
Quarter: 2023Q4

REPORT INFORMATION
  Report Type: Report from Study
  Country: CN (occurrence: CN)
  Receive Date: 20231012
  Receipt Date: 20231012
  Transmission Date: 20240110
  Serious: Yes (Death, Hospitalization)
  Sender: FDA-Public Use
  Company Number: CN-TEVA-2023-CN-2935421

PATIENT
  Age: 69 Year
  Sex: Male
  Weight: 75 kg

DRUGS (4)
  1. BENDAMUSTINE [Suspect]
     Active Substance: BENDAMUSTINE
     Indication: Chronic lymphocytic leukaemia
     Dosage: 128.1 MILLIGRAM DAILY; THERAPY; ONGOING
     Route: 042
     Dates: start: 20220815
  2. BENDAMUSTINE [Suspect]
     Active Substance: BENDAMUSTINE
     Dosage: 128.1 MILLIGRAM DAILY; THERAPY; ONGOING
     Route: 042
     Dates: start: 20220815
  3. RITUXIMAB [Suspect]
     Active Substance: RITUXIMAB
     Indication: Chronic lymphocytic leukaemia
     Dosage: 686.25 MILLIGRAM DAILY; THERAPY: ONGOING
     Route: 042
     Dates: start: 20220815
  4. RITUXIMAB [Suspect]
     Active Substance: RITUXIMAB
     Dosage: 915 MILLIGRAM DAILY; THERAPY: ONGOING
     Route: 042
     Dates: start: 20221122

REACTIONS (1)
  - COVID-19 pneumonia [Fatal]

NARRATIVE: CASE EVENT DATE: 20230112
